FAERS Safety Report 15156007 (Version 5)
Quarter: 2018Q3

REPORT INFORMATION
  Report Type: Spontaneous
  Country: FR (occurrence: FR)
  Receive Date: 20180717
  Receipt Date: 20180927
  Transmission Date: 20181010
  Serious: Yes (Other)
  Sender: FDA-Public Use
  Company Number: FR-ACORDA-ACO_151843_2018

PATIENT
  Age: 51 Year
  Sex: Female
  Weight: 65 kg

DRUGS (4)
  1. QUTENZA [Suspect]
     Active Substance: CAPSAICIN
     Dosage: 1 DF, UNK
     Route: 061
     Dates: start: 20160405, end: 20160405
  2. CLAREAL [Concomitant]
     Active Substance: DESOGESTREL
     Indication: PRODUCT USED FOR UNKNOWN INDICATION
     Dosage: UNK
     Route: 065
  3. ACETAMINOPHEN. [Concomitant]
     Active Substance: ACETAMINOPHEN
     Indication: PRODUCT USED FOR UNKNOWN INDICATION
     Dosage: UNK
     Route: 065
  4. QUTENZA [Suspect]
     Active Substance: CAPSAICIN
     Indication: NEURALGIA
     Dosage: 1 DF, UNK
     Route: 061
     Dates: start: 20160310, end: 20160310

REACTIONS (9)
  - Burns second degree [Recovering/Resolving]
  - Blister [Recovering/Resolving]
  - Application site pain [Recovered/Resolved]
  - Application site pain [Recovered/Resolved]
  - Product storage error [Unknown]
  - Wrong technique in product usage process [Unknown]
  - Drug administration error [Unknown]
  - Application site erythema [Recovered/Resolved]
  - Intentional product misuse [Unknown]

NARRATIVE: CASE EVENT DATE: 20160310
